FAERS Safety Report 17557389 (Version 1)
Quarter: 2020Q1

REPORT INFORMATION
  Report Type: Spontaneous
  Country: IT (occurrence: IT)
  Receive Date: 20200318
  Receipt Date: 20200318
  Transmission Date: 20200409
  Serious: Yes (Disabling)
  Sender: FDA-Public Use
  Company Number: IT-ELI_LILLY_AND_COMPANY-IT202003004522

PATIENT
  Age: 68 Year
  Sex: Male

DRUGS (5)
  1. PEMETREXED. [Suspect]
     Active Substance: PEMETREXED
     Indication: LUNG ADENOCARCINOMA
     Dosage: 500 MG, UNKNOWN
     Route: 042
     Dates: start: 20180906, end: 20180906
  2. NOVONORM [Concomitant]
     Active Substance: REPAGLINIDE
     Indication: DIABETES MELLITUS
  3. CARBOPLATIN. [Suspect]
     Active Substance: CARBOPLATIN
     Indication: LUNG ADENOCARCINOMA
     Dosage: UNK UNK, UNKNOWN
     Route: 042
     Dates: start: 20180906, end: 20180906
  4. CARDICOR [Concomitant]
     Active Substance: BISOPROLOL
  5. CORLENTOR [Concomitant]
     Active Substance: IVABRADINE HYDROCHLORIDE
     Dosage: 7.5 MG

REACTIONS (3)
  - Thrombocytopenia [Recovered/Resolved with Sequelae]
  - Extremity necrosis [Recovered/Resolved with Sequelae]
  - Haematoma [Recovered/Resolved with Sequelae]

NARRATIVE: CASE EVENT DATE: 20180917
